FAERS Safety Report 4322398-5 (Version None)
Quarter: 2004Q1

REPORT INFORMATION
  Report Type: 
  Country: None (occurrence: None)
  Receive Date: 20040323
  Receipt Date: 20040323
  Transmission Date: 20041129
  Serious: Yes (Hospitalization)
  Sender: FDA-Public Use
  Company Number: None

PATIENT
  Age: 6 Year
  Sex: Male
  Weight: 10.4327 kg

DRUGS (4)
  1. DEXAMETHASONE [Suspect]
     Indication: ACUTE LYMPHOCYTIC LEUKAEMIA
     Dosage: 5 MG 5 DAYS ORAL
     Route: 048
     Dates: start: 20040203, end: 20040318
  2. MERCAPTOPURINE [Suspect]
     Indication: ACUTE LYMPHOCYTIC LEUKAEMIA
     Dosage: 64.28 MG EACH DAY ORAL
     Route: 048
     Dates: start: 20040203, end: 20040318
  3. ANTIBIOTICS [Concomitant]
  4. CEFTRIAXONE [Concomitant]

REACTIONS (2)
  - BODY TEMPERATURE INCREASED [None]
  - EAR INFECTION [None]
